FAERS Safety Report 8395160-4 (Version None)
Quarter: 2012Q2

REPORT INFORMATION
  Report Type: 
  Country: None (occurrence: None)
  Receive Date: 20120530
  Receipt Date: 20120524
  Transmission Date: 20120825
  Serious: Yes (Other)
  Sender: FDA-Public Use
  Company Number: US-PFIZER INC-2012126464

PATIENT
  Sex: Female
  Weight: 47.619 kg

DRUGS (4)
  1. EFFEXOR [Suspect]
     Dosage: 150 MG, 2X/DAY
     Route: 048
  2. EFFEXOR [Suspect]
     Dosage: UNK
     Route: 048
  3. EFFEXOR [Suspect]
     Indication: DEPRESSION
     Dosage: 75 MG, UNK
     Route: 048
  4. ASPIRIN [Concomitant]
     Dosage: UNK

REACTIONS (4)
  - NERVOUS SYSTEM DISORDER [None]
  - MEMORY IMPAIRMENT [None]
  - CEREBROVASCULAR ACCIDENT [None]
  - TRANSIENT ISCHAEMIC ATTACK [None]
